FAERS Safety Report 12896511 (Version 1)
Quarter: 2016Q4

REPORT INFORMATION
  Report Type: Spontaneous
  Country: US (occurrence: US)
  Receive Date: 20161031
  Receipt Date: 20161031
  Transmission Date: 20170207
  Serious: Yes (Hospitalization)
  Sender: FDA-Public Use
  Company Number: US-AUROBINDO-AUR-APL-2016-13226

PATIENT

DRUGS (3)
  1. QUININE [Suspect]
     Active Substance: QUININE
     Indication: MUSCLE SPASMS
  2. PLAQUENIL                          /00072602/ [Suspect]
     Active Substance: HYDROXYCHLOROQUINE DIPHOSPHATE
     Indication: RHEUMATOID ARTHRITIS
  3. AMIODARONE [Suspect]
     Active Substance: AMIODARONE
     Indication: PRODUCT USED FOR UNKNOWN INDICATION

REACTIONS (14)
  - Electrocardiogram QT prolonged [Recovered/Resolved]
  - Vomiting [Recovered/Resolved]
  - Condition aggravated [Recovered/Resolved]
  - Bradycardia [Recovered/Resolved]
  - Sepsis [Recovered/Resolved]
  - Torsade de pointes [Recovered/Resolved]
  - Nausea [Recovered/Resolved]
  - Diarrhoea [Recovered/Resolved]
  - Mental status changes [Recovered/Resolved]
  - Dysarthria [Recovered/Resolved]
  - Toxicity to various agents [Recovered/Resolved]
  - Ventricular hypertrophy [Recovered/Resolved]
  - Malaise [Recovered/Resolved]
  - Decreased appetite [Recovered/Resolved]
